FAERS Safety Report 9216041 (Version 1)
Quarter: 2013Q2

REPORT INFORMATION
  Report Type: Spontaneous
  Country: US (occurrence: None)
  Receive Date: 20130402
  Receipt Date: 20130402
  Transmission Date: 20140414
  Serious: Yes (Other)
  Sender: FDA-Public Use
  Company Number: US-AGG-03-2013-0534

PATIENT
  Age: 70 Year
  Sex: Male

DRUGS (2)
  1. TIROFIBAN HYDROCHLORIDE [Suspect]
     Indication: ANTIPLATELET THERAPY
     Dates: start: 20130315, end: 20130315
  2. TIROFIBAN HYDROCHLORIDE [Suspect]
     Indication: ANTIPLATELET THERAPY
     Dosage: 1, 30 X A MINUTE INSTEAD OF 1
     Dates: start: 20130315, end: 20130315

REACTIONS (1)
  - Overdose [None]
